FAERS Safety Report 8308874-9 (Version None)
Quarter: 2012Q2

REPORT INFORMATION
  Report Type: 
  Country: None (occurrence: None)
  Receive Date: 20120424
  Receipt Date: 20110531
  Transmission Date: 20120825
  Serious: Yes (Other)
  Sender: FDA-Public Use
  Company Number: US-TEVA-2011000900

PATIENT
  Sex: Male

DRUGS (2)
  1. PROVIGIL [Suspect]
     Indication: NARCOLEPSY
     Dosage: 400 MILLIGRAM;
     Route: 048
     Dates: start: 20090101
  2. ADDERALL 5 [Concomitant]
     Dates: start: 20110501

REACTIONS (3)
  - GINGIVAL DISORDER [None]
  - DENTAL CARIES [None]
  - TOOTH LOSS [None]
